FAERS Safety Report 14895922 (Version 1)
Quarter: 2018Q2

REPORT INFORMATION
  Report Type: Spontaneous
  Country: US (occurrence: US)
  Receive Date: 20180515
  Receipt Date: 20180515
  Transmission Date: 20180711
  Serious: No
  Sender: FDA-Public Use
  Company Number: US-MYLANLABS-2018M1026464

PATIENT
  Sex: Female
  Weight: 100 kg

DRUGS (1)
  1. FENTANYL TRANSDERMAL SYSTEM [Suspect]
     Active Substance: FENTANYL
     Indication: ANALGESIC THERAPY

REACTIONS (3)
  - Application site rash [Recovered/Resolved]
  - Product quality issue [Unknown]
  - Product adhesion issue [Unknown]
